FAERS Safety Report 6398687-X (Version None)
Quarter: 2009Q3

REPORT INFORMATION
  Report Type: 
  Country: None (occurrence: None)
  Receive Date: 20090922
  Receipt Date: 20090917
  Transmission Date: 20100115
  Serious: Yes (Other)
  Sender: FDA-Public Use
  Company Number: 2009020364

PATIENT
  Age: 30 Year
  Sex: Female

DRUGS (1)
  1. RHOPHYLAC (RHO(D) IMMUNIE GLOBULIN INTRAVENOUS (HUMAN)) LOT# 434440000 [Suspect]
     Indication: PROPHYLAXIS AGAINST RH ISOIMMUNISATION
     Dosage: 2 ML
     Dates: start: 20090505

REACTIONS (3)
  - DRUG EXPOSURE DURING PREGNANCY [None]
  - HEPATITIS B [None]
  - TRANSMISSION OF AN INFECTIOUS AGENT VIA A MEDICINAL PRODUCT [None]
